FAERS Safety Report 8662467 (Version 3)
Quarter: 2012Q4

REPORT INFORMATION
  Report Type: 
  Country: US (occurrence: US)
  Receive Date: 20120712
  Receipt Date: 20121106
  Transmission Date: 20130627
  Serious: No
  Sender: FDA-Public Use
  Company Number: US-PFIZER INC-2012165600

PATIENT
  Sex: Female

DRUGS (2)
  1. OXAPROZIN [Suspect]
     Indication: ARTHRITIS
     Dosage: UNK
     Route: 048
  2. OXAPROZIN [Suspect]
     Indication: ARTHRITIS
     Dosage: UNK

REACTIONS (3)
  - Drug hypersensitivity [Unknown]
  - Lip swelling [Recovered/Resolved]
  - Oral discomfort [Unknown]
